FAERS Safety Report 8982774 (Version 1)
Quarter: 2012Q4

REPORT INFORMATION
  Report Type: 
  Country: AR (occurrence: AR)
  Receive Date: 20121221
  Receipt Date: 20121221
  Transmission Date: 20130627
  Serious: Yes (Hospitalization, Other)
  Sender: FDA-Public Use
  Company Number: PHHY2012AR118399

PATIENT
  Age: 57 Year
  Sex: Female

DRUGS (4)
  1. GALVUS [Suspect]
     Indication: DIABETES MELLITUS
     Route: 048
     Dates: start: 2009
  2. DIOVAN [Suspect]
     Indication: HYPERTENSION
     Dosage: 80 mg, daily
     Route: 048
     Dates: start: 2009
  3. EXFORGE [Suspect]
     Indication: HYPERTENSION
     Dosage: 1 DF (160/5 mg) daily
     Route: 048
     Dates: start: 2009
  4. INSULIN [Concomitant]
     Indication: DIABETES MELLITUS

REACTIONS (4)
  - Leiomyoma [Recovered/Resolved]
  - Cholelithiasis [Recovered/Resolved]
  - Gallbladder injury [Recovered/Resolved]
  - Anaemia [Unknown]
